FAERS Safety Report 13042740 (Version 1)
Quarter: 2016Q4

REPORT INFORMATION
  Report Type: Report from Study
  Country: None (occurrence: IN)
  Receive Date: 20161219
  Receipt Date: 20161219
  Transmission Date: 20170207
  Serious: Yes (Other)
  Sender: FDA-Public Use
  Company Number: IN-ABBVIE-16P-078-1815068-00

PATIENT
  Age: 26 Year
  Sex: Female

DRUGS (12)
  1. THYRONORM [Suspect]
     Active Substance: LEVOTHYROXINE
     Dosage: 125 MCG
     Route: 065
     Dates: start: 201609
  2. THYRONORM [Suspect]
     Active Substance: LEVOTHYROXINE
     Dosage: 112.5 MCG
     Route: 065
     Dates: start: 20161117
  3. THYRONORM [Suspect]
     Active Substance: LEVOTHYROXINE
     Indication: HYPOTHYROIDISM
     Dosage: 75 MCG
     Route: 048
  4. THYRONORM [Suspect]
     Active Substance: LEVOTHYROXINE
     Dosage: 100 MCG
     Route: 065
     Dates: start: 201509
  5. THYRONORM [Suspect]
     Active Substance: LEVOTHYROXINE
     Dosage: 100 MCG
     Route: 065
     Dates: start: 201610
  6. THYRONORM [Suspect]
     Active Substance: LEVOTHYROXINE
     Dosage: 125 MCG
     Route: 065
     Dates: start: 201607
  7. FOLIFER [Concomitant]
     Indication: PRODUCT USED FOR UNKNOWN INDICATION
     Route: 065
  8. CALCIUM GLUCONATE. [Concomitant]
     Active Substance: CALCIUM GLUCONATE
     Indication: PRODUCT USED FOR UNKNOWN INDICATION
     Route: 065
  9. ENDOGEST [Concomitant]
     Indication: PRODUCT USED FOR UNKNOWN INDICATION
     Route: 065
  10. THYRONORM [Suspect]
     Active Substance: LEVOTHYROXINE
     Dosage: 150 MCG
     Route: 065
     Dates: start: 2016
  11. IRON [Concomitant]
     Active Substance: IRON
     Indication: PRODUCT USED FOR UNKNOWN INDICATION
     Route: 065
  12. THYRONORM [Suspect]
     Active Substance: LEVOTHYROXINE
     Dosage: 100MCG
     Route: 065
     Dates: start: 2016

REACTIONS (3)
  - Foetal death [Unknown]
  - Maternal exposure during pregnancy [Unknown]
  - Abortion spontaneous [Unknown]

NARRATIVE: CASE EVENT DATE: 201603
